FAERS Safety Report 14274694 (Version 1)
Quarter: 2017Q4

REPORT INFORMATION
  Report Type: Spontaneous
  Country: US (occurrence: None)
  Receive Date: 20171212
  Receipt Date: 20171212
  Transmission Date: 20180321
  Serious: Yes (Death)
  Sender: FDA-Public Use
  Company Number: None

PATIENT
  Age: 59 Year
  Sex: Female

DRUGS (2)
  1. JAKAFI [Concomitant]
     Active Substance: RUXOLITINIB
  2. TACROLIMUS 0.5MG ACCORD [Suspect]
     Active Substance: TACROLIMUS
     Indication: GRAFT VERSUS HOST DISEASE
     Dosage: 2 MG Q12HRS PO
     Route: 048
     Dates: start: 20171017, end: 20171209

REACTIONS (1)
  - Death [None]

NARRATIVE: CASE EVENT DATE: 20171209
